FAERS Safety Report 5313053-3 (Version None)
Quarter: 2007Q2

REPORT INFORMATION
  Report Type: 
  Country: None (occurrence: None)
  Receive Date: 20070424
  Receipt Date: 20070410
  Transmission Date: 20071010
  Serious: Yes (Life-Threatening, Hospitalization)
  Sender: FDA-Public Use
  Company Number: 26547

PATIENT
  Age: 14 Year
  Sex: Male

DRUGS (1)
  1. NIACIN [Suspect]
     Dosage: 5.5 G PO
     Route: 048

REACTIONS (12)
  - ABDOMINAL PAIN UPPER [None]
  - DIABETIC KETOACIDOSIS [None]
  - DIZZINESS POSTURAL [None]
  - DRUG TOXICITY [None]
  - HEPATITIS [None]
  - HYPOGLYCAEMIA [None]
  - MALAISE [None]
  - NAUSEA [None]
  - NEUTROPHILIA [None]
  - PALPITATIONS [None]
  - URINE KETONE BODY PRESENT [None]
  - VOMITING [None]
